FAERS Safety Report 6444429-9 (Version None)
Quarter: 2009Q4

REPORT INFORMATION
  Report Type: 
  Country: None (occurrence: None)
  Receive Date: 20091117
  Receipt Date: 20091117
  Transmission Date: 20100525
  Serious: No
  Sender: FDA-Public Use
  Company Number: None

PATIENT
  Age: 63 Year
  Sex: Female
  Weight: 65.7716 kg

DRUGS (2)
  1. ZICAM [Suspect]
     Indication: NASOPHARYNGITIS
     Dosage: 1 TAB Q 6 HRS PO
     Route: 048
     Dates: start: 20090315, end: 20090331
  2. NASONEX [Concomitant]

REACTIONS (2)
  - AGEUSIA [None]
  - ANOSMIA [None]
